FAERS Safety Report 4563422-4 (Version None)
Quarter: 2005Q1

REPORT INFORMATION
  Report Type: 
  Country: None (occurrence: None)
  Receive Date: 20050128
  Receipt Date: 20040426
  Transmission Date: 20050727
  Serious: No
  Sender: FDA-Public Use
  Company Number: US-GLAXOSMITHKLINE-A0508470A

PATIENT
  Age: 45 Year
  Sex: Male

DRUGS (4)
  1. WELLBUTRIN [Suspect]
     Indication: DRUG USE FOR UNKNOWN INDICATION
     Dosage: 150MG TWICE PER DAY
     Route: 048
     Dates: start: 20010101
  2. CELLCEPT [Concomitant]
  3. PLAQUENIL [Concomitant]
  4. VIOXX [Concomitant]

REACTIONS (2)
  - APHASIA [None]
  - DYSPHASIA [None]
